FAERS Safety Report 5411577-1 (Version None)
Quarter: 2007Q3

REPORT INFORMATION
  Report Type: 
  Country: None (occurrence: None)
  Receive Date: 20070810
  Receipt Date: 20070802
  Transmission Date: 20080115
  Serious: Yes (Other)
  Sender: FDA-Public Use
  Company Number: JP-PFIZER INC-2007040189

PATIENT
  Sex: Female
  Weight: 48 kg

DRUGS (22)
  1. SULPERAZON [Suspect]
     Indication: INFECTION
     Route: 042
     Dates: start: 20050701, end: 20070501
  2. NORVASC [Suspect]
     Dosage: DAILY DOSE:10MG
     Route: 048
  3. LIPITOR [Suspect]
     Dosage: DAILY DOSE:10MG
     Route: 048
  4. ALLOPURINOL [Suspect]
     Dosage: DAILY DOSE:50MG
     Route: 048
  5. SODIUM BICARBONATE [Suspect]
     Dosage: TEXT:1G
     Route: 048
  6. RENIVACE [Suspect]
     Dosage: DAILY DOSE:2.5MG
     Route: 048
  7. IMMUNOSUPPRESSIVE AGENTS [Concomitant]
     Route: 048
  8. ALL OTHER THERAPEUTIC PRODUCTS [Concomitant]
     Route: 048
  9. DIURETICS [Concomitant]
     Route: 048
  10. ANTIHYPERTENSIVES [Concomitant]
     Route: 048
  11. ALL OTHER THERAPEUTIC PRODUCTS [Concomitant]
     Route: 048
  12. ALL OTHER THERAPEUTIC PRODUCTS [Concomitant]
  13. THYRADIN S [Concomitant]
     Route: 048
  14. TORSEMIDE [Concomitant]
     Route: 048
  15. CINAL [Concomitant]
     Route: 048
  16. URSO 250 [Concomitant]
     Route: 048
  17. BIOFERMIN R [Concomitant]
     Route: 048
  18. FAMOTIDINE [Concomitant]
     Route: 048
  19. PREDONINE [Concomitant]
     Route: 048
  20. CELLCEPT [Concomitant]
     Route: 048
  21. LASIX [Concomitant]
     Route: 048
  22. NEORAL [Concomitant]
     Route: 048

REACTIONS (5)
  - BLOOD PRESSURE DECREASED [None]
  - LOSS OF CONSCIOUSNESS [None]
  - RHABDOMYOLYSIS [None]
  - SNEEZING [None]
  - VOMITING [None]
